FAERS Safety Report 19149265 (Version 3)
Quarter: 2024Q3

REPORT INFORMATION
  Report Type: Spontaneous
  Country: US (occurrence: US)
  Receive Date: 20210416
  Receipt Date: 20240912
  Transmission Date: 20241017
  Serious: No
  Sender: SUNOVION
  Company Number: US-SUNOVION-2021SUN001262

PATIENT

DRUGS (3)
  1. LATUDA [Suspect]
     Active Substance: LURASIDONE HYDROCHLORIDE
     Dosage: 20 MG, BID
     Route: 048
  2. LATUDA [Suspect]
     Active Substance: LURASIDONE HYDROCHLORIDE
     Dosage: MUCH LARGER DOSE THAN 20 MG BID
     Route: 048
  3. LURASIDONE HYDROCHLORIDE [Suspect]
     Active Substance: LURASIDONE HYDROCHLORIDE

REACTIONS (4)
  - Restless legs syndrome [Unknown]
  - Off label use [Unknown]
  - Extra dose administered [Unknown]
  - Drug effect less than expected [Unknown]
